FAERS Safety Report 21434803 (Version 1)
Quarter: 2022Q4

REPORT INFORMATION
  Report Type: Report from Study
  Country: CA (occurrence: CA)
  Receive Date: 20221010
  Receipt Date: 20221010
  Transmission Date: 20230113
  Serious: Yes (Hospitalization)
  Sender: FDA-Public Use
  Company Number: CA-ABBVIE-4140871

PATIENT
  Sex: Male

DRUGS (2)
  1. SKYRIZI [Suspect]
     Active Substance: RISANKIZUMAB-RZAA
     Indication: Psoriatic arthropathy
     Route: 058
     Dates: start: 20220825
  2. SKYRIZI [Suspect]
     Active Substance: RISANKIZUMAB-RZAA
     Indication: Psoriasis
     Route: 058
     Dates: start: 2022

REACTIONS (11)
  - Blood pressure increased [Unknown]
  - SARS-CoV-2 test positive [Unknown]
  - Influenza like illness [Unknown]
  - Pain [Unknown]
  - Irritable bowel syndrome [Unknown]
  - Tremor [Unknown]
  - Arthropathy [Unknown]
  - Hyperhidrosis [Unknown]
  - Illness [Unknown]
  - Blood glucose increased [Unknown]
  - Headache [Unknown]

NARRATIVE: CASE EVENT DATE: 20220101
